FAERS Safety Report 10035657 (Version 1)
Quarter: 2014Q1

REPORT INFORMATION
  Report Type: Spontaneous
  Country: FR (occurrence: FR)
  Receive Date: 20140325
  Receipt Date: 20140325
  Transmission Date: 20141002
  Serious: Yes (Hospitalization)
  Sender: FDA-Public Use
  Company Number: FR-ASTRAZENECA-2014SE19514

PATIENT
  Age: 31378 Day
  Sex: Female

DRUGS (2)
  1. INEXIUM [Suspect]
     Route: 048
  2. SEROPLEX [Suspect]
     Route: 048
     Dates: start: 20140301

REACTIONS (4)
  - Fall [Unknown]
  - General physical health deterioration [Unknown]
  - Hyponatraemia [Recovering/Resolving]
  - Dermatitis bullous [Unknown]
